FAERS Safety Report 4568105-2 (Version None)
Quarter: 2005Q1

REPORT INFORMATION
  Report Type: 
  Country: None (occurrence: None)
  Receive Date: 20050202
  Receipt Date: 20050125
  Transmission Date: 20050727
  Serious: Yes (Other)
  Sender: FDA-Public Use
  Company Number: PHBS2005BE01524

PATIENT
  Age: 70 Year
  Sex: Female

DRUGS (3)
  1. PANTOZOL [Concomitant]
  2. APROVEL [Concomitant]
  3. GLEEVEC [Suspect]
     Indication: CHRONIC MYELOID LEUKAEMIA
     Dates: start: 20040701

REACTIONS (4)
  - FEAR [None]
  - INSOMNIA [None]
  - MAJOR DEPRESSION [None]
  - SUICIDAL IDEATION [None]
